FAERS Safety Report 6829374-9 (Version None)
Quarter: 2010Q3

REPORT INFORMATION
  Report Type: 
  Country: None (occurrence: None)
  Receive Date: 20100709
  Receipt Date: 20070308
  Transmission Date: 20110219
  Serious: No
  Sender: FDA-Public Use
  Company Number: US-PFIZER INC-2007016905

PATIENT
  Sex: Male
  Weight: 101.15 kg

DRUGS (2)
  1. CHANTIX [Suspect]
     Indication: SMOKING CESSATION THERAPY
     Dates: start: 20070101
  2. AZITHROMYCIN [Suspect]
     Indication: EAR INFECTION
     Dates: start: 20070302

REACTIONS (4)
  - EAR CONGESTION [None]
  - EAR DISORDER [None]
  - EAR INFECTION [None]
  - FEELING ABNORMAL [None]
